FAERS Safety Report 12422312 (Version 1)
Quarter: 2016Q2

REPORT INFORMATION
  Report Type: Spontaneous
  Country: US (occurrence: US)
  Receive Date: 20160601
  Receipt Date: 20160601
  Transmission Date: 20160815
  Serious: Yes (Other)
  Sender: FDA-Public Use
  Company Number: US-JNJFOC-20160510440

PATIENT
  Age: 60 Year
  Sex: Male

DRUGS (2)
  1. SURGICEL [Suspect]
     Active Substance: CELLULOSE, OXIDIZED
     Indication: HAEMOSTASIS
     Route: 065
     Dates: start: 20160505, end: 20160505
  2. EVARREST [Suspect]
     Active Substance: FIBRINOGEN HUMAN\THROMBIN HUMAN
     Indication: HAEMOSTASIS
     Route: 061
     Dates: start: 20160505, end: 20160505

REACTIONS (1)
  - Drug ineffective [Recovering/Resolving]

NARRATIVE: CASE EVENT DATE: 20160505
